APPROVED DRUG PRODUCT: DEXTROSE 2.5% AND SODIUM CHLORIDE 0.45% IN PLASTIC CONTAINER
Active Ingredient: DEXTROSE; SODIUM CHLORIDE
Strength: 2.5GM/100ML;450MG/100ML
Dosage Form/Route: INJECTABLE;INJECTION
Application: N016697 | Product #001 | TE Code: AP
Applicant: BAXTER HEALTHCARE CORP
Approved: Approved Prior to Jan 1, 1982 | RLD: Yes | RS: Yes | Type: RX